FAERS Safety Report 10971095 (Version 1)
Quarter: 2015Q1

REPORT INFORMATION
  Report Type: Spontaneous
  Country: US (occurrence: None)
  Receive Date: 20150330
  Receipt Date: 20150330
  Transmission Date: 20150721
  Serious: No
  Sender: FDA-Public Use
  Company Number: None

PATIENT
  Age: 20 Year
  Sex: Male
  Weight: 86.18 kg

DRUGS (1)
  1. HEAD AND SHOULDERS [Suspect]
     Active Substance: PYRITHIONE ZINC
     Indication: HAIR DISORDER

REACTIONS (1)
  - Dry skin [None]
